FAERS Safety Report 9919878 (Version 1)
Quarter: 2014Q1

REPORT INFORMATION
  Report Type: Report from Study
  Country: BR (occurrence: BR)
  Receive Date: 20140224
  Receipt Date: 20140224
  Transmission Date: 20141002
  Serious: Yes (Other)
  Sender: FDA-Public Use
  Company Number: PHHY2014BR021318

PATIENT
  Age: 78 Year
  Sex: Female
  Weight: 62 kg

DRUGS (3)
  1. DIOVAN AMLO FIX [Suspect]
     Indication: HYPERTENSION
     Dosage: 1 DF (160 MG VALS, 5 MG AMLO), DAILY
     Route: 048
  2. ROXFLAN [Concomitant]
     Dosage: 1 DF (5MG), DAILY
     Route: 048
  3. LIPITOR [Concomitant]
     Dosage: 0.5 DF (40 MG), DAILY

REACTIONS (2)
  - Thyroid cancer [Recovered/Resolved]
  - Oedema peripheral [Recovering/Resolving]
